FAERS Safety Report 14364775 (Version 3)
Quarter: 2018Q1

REPORT INFORMATION
  Report Type: Report from Study
  Country: US (occurrence: US)
  Receive Date: 20180108
  Receipt Date: 20180308
  Transmission Date: 20180509
  Serious: Yes (Hospitalization)
  Sender: FDA-Public Use
  Company Number: US-RETROPHIN, INC.-2017RTN00110

PATIENT
  Age: 0 Year
  Sex: Male
  Weight: 6.73 kg

DRUGS (8)
  1. CHOLIC ACID [Suspect]
     Active Substance: CHOLIC ACID
     Indication: INBORN ERROR IN PRIMARY BILE ACID SYNTHESIS
     Dosage: 50 MG, 1X/DAY
     Dates: start: 20170929, end: 2017
  2. CHOLIC ACID [Suspect]
     Active Substance: CHOLIC ACID
     Dosage: 50 MG, 1X/DAY
     Dates: start: 2017, end: 20171210
  3. CHOLIC ACID [Suspect]
     Active Substance: CHOLIC ACID
     Dosage: 50 TO 75 MG, 1X/DAY
     Dates: start: 201802
  4. AQUADEK VITAMINS [Suspect]
     Active Substance: MINERALS\VITAMINS
     Dosage: UNK
  5. CHOLIC ACID [Suspect]
     Active Substance: CHOLIC ACID
     Dosage: 100 MG, 1X/DAY
     Dates: start: 20171004
  6. TRI-VI-SOL VITAMINS [Concomitant]
     Active Substance: VITAMINS
  7. CHOLIC ACID [Suspect]
     Active Substance: CHOLIC ACID
     Dosage: 100 MG, 1X/DAY AT NIGHT
     Dates: start: 20171211, end: 201802
  8. PREGESTIMIL FORMULA 27 CAL [Suspect]
     Active Substance: CARBOHYDRATES\FATTY ACIDS\MINERALS\PROTEIN\VITAMINS
     Dosage: 28 OZ, 1X/DAY
     Dates: start: 2017

REACTIONS (17)
  - Gastrostomy tube site complication [Recovering/Resolving]
  - Faeces discoloured [Not Recovered/Not Resolved]
  - Vomiting [Not Recovered/Not Resolved]
  - Weight fluctuation [Not Recovered/Not Resolved]
  - Malaise [Unknown]
  - Gastritis [Unknown]
  - Abdominal discomfort [Unknown]
  - Respiratory syncytial virus infection [Not Recovered/Not Resolved]
  - Cough [Not Recovered/Not Resolved]
  - Inflammation [Unknown]
  - Weight decreased [Not Recovered/Not Resolved]
  - Nasopharyngitis [Unknown]
  - Ear infection [Not Recovered/Not Resolved]
  - Blood triglycerides increased [Unknown]
  - Diarrhoea [Not Recovered/Not Resolved]
  - Abnormal faeces [Not Recovered/Not Resolved]
  - Aspartate aminotransferase increased [Unknown]

NARRATIVE: CASE EVENT DATE: 2017
